FAERS Safety Report 26213815 (Version 1)
Quarter: 2025Q4

REPORT INFORMATION
  Report Type: Spontaneous
  Country: JP (occurrence: JP)
  Receive Date: 20251230
  Receipt Date: 20251230
  Transmission Date: 20260117
  Serious: Yes (Hospitalization)
  Sender: EISAI
  Company Number: JP-Eisai-202512837_ART_P_1

PATIENT
  Age: 69 Year
  Sex: Female

DRUGS (2)
  1. DONEPEZIL [Suspect]
     Active Substance: DONEPEZIL
     Indication: Dementia Alzheimer^s type
     Dosage: DOSE AND FREQUENCY UNKNOWN
     Route: 048
  2. DONEPEZIL [Suspect]
     Active Substance: DONEPEZIL
     Dosage: FREQUENCY UNKNOWN
     Route: 048

REACTIONS (1)
  - Neuropsychological symptoms [Unknown]
